FAERS Safety Report 6974946-4 (Version None)
Quarter: 2010Q3

REPORT INFORMATION
  Report Type: 
  Country: None (occurrence: None)
  Receive Date: 20100909
  Receipt Date: 20090109
  Transmission Date: 20110219
  Serious: No
  Sender: FDA-Public Use
  Company Number: US-WYE-H07663309

PATIENT
  Age: 62 Year
  Sex: Female

DRUGS (6)
  1. PRISTIQ [Suspect]
     Indication: DEPRESSION
     Route: 048
     Dates: start: 20090105
  2. FOLIC ACID [Concomitant]
  3. LOVAZA [Concomitant]
  4. VITAMINS WITH MINERALS [Concomitant]
  5. DILTIAZEM [Concomitant]
  6. CALCIUM [Concomitant]

REACTIONS (6)
  - BALANCE DISORDER [None]
  - CONDITION AGGRAVATED [None]
  - FEELING COLD [None]
  - HEART RATE IRREGULAR [None]
  - INSOMNIA [None]
  - POLLAKIURIA [None]
